FAERS Safety Report 10076145 (Version 1)
Quarter: 2014Q2

REPORT INFORMATION
  Report Type: Spontaneous
  Country: US (occurrence: None)
  Receive Date: 20140410
  Receipt Date: 20140410
  Transmission Date: 20141212
  Serious: Yes (Hospitalization)
  Sender: FDA-Public Use
  Company Number: 2275869

PATIENT
  Age: 30 Week
  Sex: Male

DRUGS (3)
  1. VINCRISTINE SULFATE [Suspect]
     Indication: HEPATOBLASTOMA
     Dosage: CYCLICAL
  2. 5-FLUOROURACIL [Suspect]
     Indication: HEPATOBLASTOMA
     Dosage: CYCLICAL
  3. DOXORUBICIN [Suspect]
     Indication: HEPATOBLASTOMA
     Dosage: CYCLICAL

REACTIONS (5)
  - Febrile neutropenia [None]
  - Dehydration [None]
  - Device failure [None]
  - Dialysis [None]
  - Renal transplant [None]
